FAERS Safety Report 7850269-6 (Version None)
Quarter: 2011Q4

REPORT INFORMATION
  Report Type: 
  Country: None (occurrence: None)
  Receive Date: 20111026
  Receipt Date: 20111018
  Transmission Date: 20120403
  Serious: Yes (Hospitalization, Other)
  Sender: FDA-Public Use
  Company Number: US-JNJFOC-20111002593

PATIENT
  Sex: Male

DRUGS (17)
  1. OMEPRAZOLE [Concomitant]
     Indication: DYSPEPSIA
     Route: 048
  2. PERCOCET [Concomitant]
     Indication: BREAKTHROUGH PAIN
     Route: 048
  3. GINSENG [Concomitant]
     Indication: MEDICAL DIET
     Route: 048
  4. FENTANYL-100 [Suspect]
     Indication: BACK PAIN
     Route: 062
     Dates: start: 20110101
  5. MULTI-VITAMINS [Concomitant]
     Indication: MEDICAL DIET
     Route: 048
  6. LORAZEPAM [Concomitant]
     Indication: SLEEP DISORDER
     Route: 048
  7. CALCIUM CARBONATE [Concomitant]
     Indication: NUTRITIONAL SUPPORT
     Route: 048
  8. MAGNESIUM [Concomitant]
     Indication: MEDICAL DIET
     Route: 048
  9. OXYCODONE/ACETAMINOPHEN [Concomitant]
     Indication: PAIN
     Dosage: 5-325 MG
     Route: 048
  10. LOVAZA [Concomitant]
     Indication: MEDICAL DIET
  11. VITAMIN D [Concomitant]
     Indication: VITAMIN SUPPLEMENTATION
     Route: 048
  12. ASCORBIC ACID [Concomitant]
     Indication: MEDICAL DIET
     Route: 048
  13. FATTY ACIDS NOS [Concomitant]
     Indication: MEDICAL DIET
     Route: 048
  14. SPIRIVA [Concomitant]
     Indication: CHRONIC OBSTRUCTIVE PULMONARY DISEASE
     Route: 055
  15. ALBUTEROL [Concomitant]
     Indication: CHRONIC OBSTRUCTIVE PULMONARY DISEASE
     Route: 055
  16. DULERA ORAL INHALATION [Concomitant]
     Indication: CHRONIC OBSTRUCTIVE PULMONARY DISEASE
     Route: 055
  17. FENTANYL-100 [Suspect]
     Route: 062
     Dates: start: 20100101, end: 20110101

REACTIONS (18)
  - CATARACT [None]
  - EATING DISORDER [None]
  - DRUG ADMINISTERED AT INAPPROPRIATE SITE [None]
  - WEIGHT DECREASED [None]
  - WITHDRAWAL SYNDROME [None]
  - NERVOUSNESS [None]
  - WRONG TECHNIQUE IN DRUG USAGE PROCESS [None]
  - PRODUCT QUALITY ISSUE [None]
  - APPLICATION SITE EXFOLIATION [None]
  - THERAPEUTIC RESPONSE DECREASED [None]
  - HYPERHIDROSIS [None]
  - SPEECH DISORDER [None]
  - MUSCLE TWITCHING [None]
  - FEELING OF BODY TEMPERATURE CHANGE [None]
  - CHRONIC OBSTRUCTIVE PULMONARY DISEASE [None]
  - CONSTIPATION [None]
  - FEELING ABNORMAL [None]
  - INAPPROPRIATE SCHEDULE OF DRUG ADMINISTRATION [None]
